FAERS Safety Report 9325911 (Version 2)
Quarter: 2013Q2

REPORT INFORMATION
  Report Type: Spontaneous
  Country: BR (occurrence: BR)
  Receive Date: 20130604
  Receipt Date: 20130624
  Transmission Date: 20140414
  Serious: Yes (Other)
  Sender: FDA-Public Use
  Company Number: BR-JNJFOC-20130518176

PATIENT
  Sex: Female
  Weight: 7 kg

DRUGS (1)
  1. TYLENOL GOTAS [Suspect]
     Indication: MUSCLE SPASMS
     Route: 048
     Dates: start: 2013, end: 2013

REACTIONS (4)
  - Accidental overdose [Recovered/Resolved]
  - Haematochezia [Recovered/Resolved]
  - Somnolence [Recovered/Resolved]
  - Product dropper issue [Unknown]
